FAERS Safety Report 4532020-0 (Version None)
Quarter: 2004Q4

REPORT INFORMATION
  Report Type: 
  Country: None (occurrence: None)
  Receive Date: 20041217
  Receipt Date: 20041119
  Transmission Date: 20050328
  Serious: Yes (Hospitalization)
  Sender: FDA-Public Use
  Company Number: A02200403448

PATIENT
  Age: 41 Year
  Sex: Female

DRUGS (5)
  1. PLAQUENIL [Suspect]
     Indication: SYSTEMIC LUPUS ERYTHEMATOSUS
     Dosage: 400 MG ORAL
     Route: 048
     Dates: start: 20020101, end: 20041001
  2. LAMICTAL [Suspect]
     Indication: EPILEPSY
     Dosage: 50 MG ORAL
     Route: 048
     Dates: start: 20040922, end: 20041001
  3. PREDNISONE [Concomitant]
  4. CACIT D3 (CALCIUM/COLECALCIFEROL) [Concomitant]
  5. ACETAMINOPHEN [Concomitant]

REACTIONS (43)
  - ACIDOSIS [None]
  - ANTINUCLEAR ANTIBODY POSITIVE [None]
  - ANURIA [None]
  - CHOLESTASIS [None]
  - CLONUS [None]
  - COAGULOPATHY [None]
  - CONDITION AGGRAVATED [None]
  - CONFUSIONAL STATE [None]
  - CONJUNCTIVITIS [None]
  - CYTOLYTIC HEPATITIS [None]
  - DIALYSIS [None]
  - DIARRHOEA [None]
  - DISORIENTATION [None]
  - DISSEMINATED INTRAVASCULAR COAGULATION [None]
  - DRUG RASH WITH EOSINOPHILIA AND SYSTEMIC SYMPTOMS [None]
  - EPILEPSY [None]
  - HAEMODIALYSIS [None]
  - HAEMOTHORAX [None]
  - HEPATIC FAILURE [None]
  - HEPATIC LESION [None]
  - HYPERLACTACIDAEMIA [None]
  - HYPERSENSITIVITY [None]
  - HYPERTHERMIA [None]
  - HYPOKALAEMIA [None]
  - HYPONATRAEMIA [None]
  - HYPOVOLAEMIA [None]
  - HYPOXIA [None]
  - IATROGENIC INJURY [None]
  - LOSS OF CONSCIOUSNESS [None]
  - MOTOR DYSFUNCTION [None]
  - MUSCLE ATROPHY [None]
  - NYSTAGMUS [None]
  - PANCREATITIS ACUTE [None]
  - PAROTITIS [None]
  - POST PROCEDURAL HAEMORRHAGE [None]
  - RENAL FAILURE ACUTE [None]
  - RESPIRATORY ALKALOSIS [None]
  - RHABDOMYOLYSIS [None]
  - SLE ARTHRITIS [None]
  - STREPTOCOCCAL SEPSIS [None]
  - TOXIC SKIN ERUPTION [None]
  - VIRAL INFECTION [None]
  - VOMITING [None]
